FAERS Safety Report 17660579 (Version 1)
Quarter: 2020Q2

REPORT INFORMATION
  Report Type: Spontaneous
  Country: US (occurrence: US)
  Receive Date: 20200413
  Receipt Date: 20200413
  Transmission Date: 20200713
  Serious: No
  Sender: FDA-Public Use
  Company Number: US-DRREDDYS-USA/USA/20/0121850

PATIENT
  Age: 28 Year
  Sex: Male

DRUGS (10)
  1. DOXORUBICIN HYDROCHLORIDE LIPOSOME INJECTION 20 MG/10 ML (2 MG/ML) AND [Suspect]
     Active Substance: DOXORUBICIN HYDROCHLORIDE
     Indication: HERPES VIRUS INFECTION
     Route: 065
  2. DOXORUBICIN HYDROCHLORIDE LIPOSOME INJECTION 20 MG/10 ML (2 MG/ML) AND [Suspect]
     Active Substance: DOXORUBICIN HYDROCHLORIDE
     Indication: KAPOSI^S SARCOMA
  3. TENOFOVIR DISOPROXIL FUMARATE. [Concomitant]
     Active Substance: TENOFOVIR DISOPROXIL FUMARATE
     Indication: HIV VIRAEMIA
  4. RITUXIMAB. [Suspect]
     Active Substance: RITUXIMAB
     Indication: KAPOSI^S SARCOMA
  5. RITUXIMAB. [Suspect]
     Active Substance: RITUXIMAB
     Indication: CYTOKINE RELEASE SYNDROME
  6. ELVITEGRAVIR [Concomitant]
     Active Substance: ELVITEGRAVIR
     Indication: HIV VIRAEMIA
  7. RITUXIMAB. [Suspect]
     Active Substance: RITUXIMAB
     Indication: HERPES VIRUS INFECTION
     Route: 065
  8. EMTRICITABINE [Concomitant]
     Active Substance: EMTRICITABINE
     Indication: HIV VIRAEMIA
  9. DOXORUBICIN HYDROCHLORIDE LIPOSOME INJECTION 20 MG/10 ML (2 MG/ML) AND [Suspect]
     Active Substance: DOXORUBICIN HYDROCHLORIDE
     Indication: CYTOKINE RELEASE SYNDROME
  10. COBICISTAT [Concomitant]
     Active Substance: COBICISTAT
     Indication: HIV VIRAEMIA

REACTIONS (1)
  - Ejection fraction decreased [Unknown]
